FAERS Safety Report 11214605 (Version 1)
Quarter: 2015Q2

REPORT INFORMATION
  Report Type: Report from Study
  Country: KR (occurrence: KR)
  Receive Date: 20150624
  Receipt Date: 20150624
  Transmission Date: 20150821
  Serious: No
  Sender: FDA-Public Use
  Company Number: PHHY2015KR075132

PATIENT
  Age: 50 Year
  Sex: Male

DRUGS (3)
  1. DISOLIN [Concomitant]
     Indication: PERICARDIAL EFFUSION
     Dosage: 20 MG,
     Route: 042
     Dates: start: 20140912, end: 20140922
  2. SOLONDO [Concomitant]
     Active Substance: PREDNISOLONE
     Indication: PLEURAL EFFUSION
     Dosage: 25 MG,
     Route: 048
     Dates: start: 20140922, end: 20141020
  3. AMN107 [Suspect]
     Active Substance: NILOTINIB
     Indication: CHRONIC MYELOID LEUKAEMIA
     Dosage: 600 MG, QD
     Route: 048
     Dates: start: 20140919

REACTIONS (2)
  - Productive cough [Recovered/Resolved]
  - Cough [Recovered/Resolved]

NARRATIVE: CASE EVENT DATE: 20141006
